FAERS Safety Report 7245181-X (Version None)
Quarter: 2011Q1

REPORT INFORMATION
  Report Type: 
  Country: None (occurrence: None)
  Receive Date: 20110126
  Receipt Date: 20110113
  Transmission Date: 20110831
  Serious: Yes (Hospitalization)
  Sender: FDA-Public Use
  Company Number: PHHO2010GB17585

PATIENT
  Sex: Male

DRUGS (5)
  1. PREDNISOLONE [Concomitant]
     Indication: METASTASES TO BONE
     Dosage: 10 MG, UNK
     Dates: start: 20101005, end: 20101007
  2. ZOLEDRONATE [Suspect]
     Indication: METASTASES TO BONE
     Dosage: 4 MG, UNK
     Dates: start: 20101005, end: 20101005
  3. CALCICHEW [Concomitant]
  4. DOCETAXEL [Concomitant]
     Indication: METASTASES TO BONE
     Dosage: 150 MG, UNK
     Dates: start: 20101005
  5. STRONTIUM CHLORIDE SR-89 [Concomitant]

REACTIONS (4)
  - HYPOMAGNESAEMIA [None]
  - HYPOCALCAEMIA [None]
  - MALAISE [None]
  - ELECTROCARDIOGRAM QT PROLONGED [None]
